FAERS Safety Report 6573215-4 (Version None)
Quarter: 2010Q1

REPORT INFORMATION
  Report Type: 
  Country: None (occurrence: None)
  Receive Date: 20100208
  Receipt Date: 20100126
  Transmission Date: 20100710
  Serious: Yes (Other)
  Sender: FDA-Public Use
  Company Number: HU-JNJFOC-20100200205

PATIENT

DRUGS (1)
  1. REMICADE [Suspect]
     Indication: CROHN'S DISEASE
     Dosage: INDUCTION THERAPY AT WEEKS 0, 2, AND 6
     Route: 042

REACTIONS (1)
  - ANAPHYLACTIC REACTION [None]
